FAERS Safety Report 15511295 (Version 1)
Quarter: 2018Q4

REPORT INFORMATION
  Report Type: Report from Study
  Country: US (occurrence: US)
  Receive Date: 20181016
  Receipt Date: 20181016
  Transmission Date: 20190205
  Serious: No
  Sender: FDA-Public Use
  Company Number: US-AMGEN-USASL2018055005

PATIENT
  Age: 18 Year
  Sex: Male

DRUGS (5)
  1. ETOPOSIDE. [Concomitant]
     Active Substance: ETOPOSIDE
     Indication: BRAIN NEOPLASM MALIGNANT
     Dosage: UNK
     Dates: start: 201211, end: 201302
  2. ETOPOSIDE. [Concomitant]
     Active Substance: ETOPOSIDE
     Dosage: UNK
     Dates: start: 201302, end: 20130222
  3. NEULASTA [Suspect]
     Active Substance: PEGFILGRASTIM
     Indication: BRAIN NEOPLASM MALIGNANT
     Dosage: UNK
     Route: 065
     Dates: start: 201211, end: 20130222
  4. CARBOPLATIN. [Concomitant]
     Active Substance: CARBOPLATIN
     Indication: BRAIN NEOPLASM MALIGNANT
     Dosage: UNK
     Dates: start: 201211, end: 201302
  5. CARBOPLATIN. [Concomitant]
     Active Substance: CARBOPLATIN
     Dosage: UNK
     Dates: start: 201302, end: 20130222

REACTIONS (4)
  - Gait disturbance [Unknown]
  - Fatigue [Unknown]
  - Off label use [Unknown]
  - White blood cell count decreased [Unknown]

NARRATIVE: CASE EVENT DATE: 201211
